FAERS Safety Report 14685389 (Version 1)
Quarter: 2018Q1

REPORT INFORMATION
  Report Type: Spontaneous
  Country: US (occurrence: US)
  Receive Date: 20180327
  Receipt Date: 20180327
  Transmission Date: 20180509
  Serious: No
  Sender: FDA-Public Use
  Company Number: US-TEIKOKU PHARMA USA-TPU2018-00045

PATIENT
  Sex: Female
  Weight: 124.4 kg

DRUGS (9)
  1. LIDOCAINE PATCH [Suspect]
     Active Substance: LIDOCAINE
     Indication: SCIATICA
  2. LIDODERM [Suspect]
     Active Substance: LIDOCAINE
     Indication: FIBROMYALGIA
  3. LIDOCAINE PATCH [Suspect]
     Active Substance: LIDOCAINE
     Indication: FIBROMYALGIA
  4. ADVIL [Suspect]
     Active Substance: IBUPROFEN
     Indication: PAIN
  5. LIDODERM [Suspect]
     Active Substance: LIDOCAINE
     Indication: SCIATICA
  6. PANTOPRAZOLE [Concomitant]
     Active Substance: PANTOPRAZOLE
     Dates: start: 2009
  7. LIDODERM [Suspect]
     Active Substance: LIDOCAINE
     Indication: OSTEOARTHRITIS
  8. LIDOCAINE PATCH [Suspect]
     Active Substance: LIDOCAINE
     Indication: OSTEOARTHRITIS
     Dosage: APPLY TO HIP AND LOWER BACK IF NEEDED
     Dates: start: 2012
  9. FLEXERIL [Suspect]
     Active Substance: CYCLOBENZAPRINE HYDROCHLORIDE
     Indication: MUSCLE SPASMS
     Dosage: BITE OFF A LITTLE PIECE, LESS THAN HALF OF A TABLET, SHE CAN ONLY TAKE ABOUT 2 MG
     Dates: start: 2010

REACTIONS (5)
  - Mobility decreased [Unknown]
  - Weight increased [Unknown]
  - Gastrooesophageal reflux disease [Unknown]
  - Somnolence [Unknown]
  - Liver injury [Unknown]
